FAERS Safety Report 21088508 (Version 1)
Quarter: 2022Q3

REPORT INFORMATION
  Report Type: Spontaneous
  Country: BR (occurrence: BR)
  Receive Date: 20220715
  Receipt Date: 20220715
  Transmission Date: 20221027
  Serious: Yes (Other)
  Sender: FDA-Public Use
  Company Number: BR-ABBOTT-2022A-1350802

PATIENT
  Sex: Female

DRUGS (2)
  1. FENOFIBRATE [Suspect]
     Active Substance: FENOFIBRATE
     Indication: Product used for unknown indication
     Route: 065
  2. DOSTINEX [Suspect]
     Active Substance: CABERGOLINE
     Indication: Blood prolactin abnormal
     Route: 065

REACTIONS (5)
  - Neoplasm [Recovered/Resolved]
  - Pituitary tumour benign [Unknown]
  - Blood prolactin increased [Unknown]
  - Dizziness [Unknown]
  - Feeling abnormal [Unknown]
